FAERS Safety Report 6905674-9 (Version None)
Quarter: 2010Q3

REPORT INFORMATION
  Report Type: 
  Country: None (occurrence: None)
  Receive Date: 20100804
  Receipt Date: 20071220
  Transmission Date: 20110219
  Serious: Yes (Other)
  Sender: FDA-Public Use
  Company Number: PFIZER INC-2007108417

PATIENT
  Sex: Female

DRUGS (2)
  1. CHANTIX [Suspect]
  2. EFFEXOR [Suspect]
     Indication: ANTIDEPRESSANT THERAPY

REACTIONS (1)
  - SUICIDAL IDEATION [None]
